FAERS Safety Report 8895894 (Version 3)
Quarter: 2014Q2

REPORT INFORMATION
  Report Type: Spontaneous
  Country: US (occurrence: US)
  Receive Date: 20121107
  Receipt Date: 20140625
  Transmission Date: 20141212
  Serious: No
  Sender: FDA-Public Use
  Company Number: US-ASTRAZENECA-2012SE16224

PATIENT
  Age: 56 Year
  Sex: Female

DRUGS (4)
  1. ZOMIG [Suspect]
     Indication: MIGRAINE
     Route: 048
  2. ZOMIG [Suspect]
     Indication: MIGRAINE
     Route: 048
  3. ZOMIG [Suspect]
     Indication: MIGRAINE
     Dosage: 5 MG ONE TAB AT ONSET, MAY REPEAT IN TWO HOURS
     Route: 048
     Dates: start: 200610
  4. ZOMIG [Suspect]
     Indication: MIGRAINE
     Dosage: 2.5 MG 1 AT ONSET OF HA, MAY REPEAT ONCE IN 24 HOURS
     Route: 048
     Dates: start: 2009

REACTIONS (5)
  - Activities of daily living impaired [Unknown]
  - Migraine [Unknown]
  - Urinary tract infection [Unknown]
  - Drug dose omission [Unknown]
  - Intentional product misuse [Unknown]
